FAERS Safety Report 7450371-7 (Version None)
Quarter: 2011Q2

REPORT INFORMATION
  Report Type: 
  Country: None (occurrence: None)
  Receive Date: 20110502
  Receipt Date: 20110422
  Transmission Date: 20111010
  Serious: Yes (Other)
  Sender: FDA-Public Use
  Company Number: US-AMGEN-USASP2011021284

PATIENT
  Age: 64 Year
  Sex: Male

DRUGS (1)
  1. ENBREL [Suspect]
     Indication: RHEUMATOID ARTHRITIS
     Dosage: 25 MG, 2 TIMES/WK
     Dates: start: 20000101, end: 20100801

REACTIONS (6)
  - RHEUMATOID ARTHRITIS [None]
  - MUSCLE SPASMS [None]
  - OEDEMA PERIPHERAL [None]
  - DEPRESSION [None]
  - SCIATICA [None]
  - SENSATION OF HEAVINESS [None]
